FAERS Safety Report 8326744-7 (Version None)
Quarter: 2012Q2

REPORT INFORMATION
  Report Type: 
  Country: None (occurrence: None)
  Receive Date: 20120501
  Receipt Date: 20120425
  Transmission Date: 20120825
  Serious: Yes (Hospitalization, Other)
  Sender: FDA-Public Use
  Company Number: PHHY2012IT035626

PATIENT
  Sex: Female

DRUGS (2)
  1. ALPRAZOLAM [Suspect]
     Dosage: 10 MG
     Route: 048
     Dates: start: 20120423, end: 20120423
  2. ELOPRAM [Concomitant]
     Indication: DEPRESSION

REACTIONS (4)
  - BRADYPHRENIA [None]
  - BRADYKINESIA [None]
  - INTENTIONAL SELF-INJURY [None]
  - INTENTIONAL OVERDOSE [None]
